FAERS Safety Report 16341590 (Version 2)
Quarter: 2019Q2

REPORT INFORMATION
  Report Type: Report from Study
  Country: US (occurrence: US)
  Receive Date: 20190522
  Receipt Date: 20190528
  Transmission Date: 20190711
  Serious: Yes (Other)
  Sender: FDA-Public Use
  Company Number: US-ROCHE-2321531

PATIENT
  Sex: Female

DRUGS (1)
  1. OCREVUS [Suspect]
     Active Substance: OCRELIZUMAB
     Indication: PRIMARY PROGRESSIVE MULTIPLE SCLEROSIS
     Dosage: PREVIOUS DATE OF TREATMENT- 23/APR/2018,07/MAY/2018,23/OCT/2018?NEXT INFUSION ON 06/MAY/2019
     Route: 065

REACTIONS (1)
  - Wound infection [Unknown]
